FAERS Safety Report 9433714 (Version 1)
Quarter: 2013Q3

REPORT INFORMATION
  Report Type: Spontaneous
  Country: US (occurrence: US)
  Receive Date: 20130731
  Receipt Date: 20130731
  Transmission Date: 20140515
  Serious: No
  Sender: FDA-Public Use
  Company Number: US-009507513-1307USA014341

PATIENT
  Age: 8 Year
  Sex: Female

DRUGS (2)
  1. SINGULAIR [Suspect]
     Indication: ASTHMA
     Dosage: 5 MG, ONCE DAILY
     Route: 048
     Dates: start: 20130719, end: 20130724
  2. ZYRTEC [Concomitant]
     Dosage: 5 MG, ONCE DAILY

REACTIONS (4)
  - Nightmare [Not Recovered/Not Resolved]
  - Paranoia [Not Recovered/Not Resolved]
  - Insomnia [Not Recovered/Not Resolved]
  - Anxiety [Not Recovered/Not Resolved]
